FAERS Safety Report 26074746 (Version 2)
Quarter: 2025Q4

REPORT INFORMATION
  Report Type: Spontaneous
  Country: EU (occurrence: EU)
  Receive Date: 20251121
  Receipt Date: 20251229
  Transmission Date: 20260117
  Serious: Yes (Life-Threatening, Hospitalization)
  Sender: SANDOZ
  Company Number: EU-ORPHANEU-2025007808

PATIENT
  Age: 14 Year
  Sex: Male
  Weight: 46 kg

DRUGS (5)
  1. TOPOTECAN [Suspect]
     Active Substance: TOPOTECAN HYDROCHLORIDE
     Indication: Neuroblastoma recurrent
     Dosage: UNK; TOTEM 3
     Dates: start: 20251013, end: 20251020
  2. DINUTUXIMAB BETA [Suspect]
     Active Substance: DINUTUXIMAB BETA
     Indication: Neuroblastoma recurrent
     Dosage: 70 MILLIGRAM/SQ. METER (MG/M2) (1 WEEK OF 2ML/H)
     Dates: start: 20251020, end: 20251024
  3. DINUTUXIMAB BETA [Suspect]
     Active Substance: DINUTUXIMAB BETA
     Dosage: 70 MILLIGRAM/SQ. METER (MG/M2) (1 WEEK OF 2ML/H) (STOPPED FOR 45 MINUTES)
     Dates: start: 20251024, end: 20251027
  4. TEMOZOLOMIDE [Suspect]
     Active Substance: TEMOZOLOMIDE
     Indication: Neuroblastoma recurrent
     Dosage: UNK; TOTEM 3
     Dates: start: 20251013, end: 20251020
  5. MORPHINE [Suspect]
     Active Substance: MORPHINE
     Indication: Pain
     Dosage: UNK
     Dates: start: 20251020, end: 20251023

REACTIONS (3)
  - Myelitis transverse [Recovering/Resolving]
  - Encephalopathy [Recovering/Resolving]
  - Off label use [Recovered/Resolved]

NARRATIVE: CASE EVENT DATE: 20251001
